FAERS Safety Report 7715585-7 (Version None)
Quarter: 2011Q3

REPORT INFORMATION
  Report Type: 
  Country: None (occurrence: None)
  Receive Date: 20110823
  Receipt Date: 20110810
  Transmission Date: 20111222
  Serious: Yes (Other)
  Sender: FDA-Public Use
  Company Number: 2011-2806

PATIENT
  Age: 48 Year
  Sex: Female

DRUGS (4)
  1. BACLOFEN [Suspect]
     Dosage: ORAL
     Route: 048
  2. ANTICHOLINERGICS (ANTICHOLINERGICS) ABOBOTULINUM TOXIN A [Suspect]
     Indication: DYSTONIA
     Dosage: ORAL
     Route: 048
  3. BENZODIAZEPINES NOS (BENZODIAZEPINE DERIATIVES) [Suspect]
     Indication: PRODUCT USED FOR UNKNOWN INDICATION
  4. BOTULINUM TOXIN TYPE A (BOTULINUM TOXIN TYPE A NOS) (BOTULINUM TOXIN T [Suspect]
     Indication: DYSTONIA
     Dosage: (SINGLE CYCLE)

REACTIONS (5)
  - PAIN IN EXTREMITY [None]
  - OFF LABEL USE [None]
  - ARM AMPUTATION [None]
  - CONDITION AGGRAVATED [None]
  - DYSTONIA [None]
